FAERS Safety Report 14994456 (Version 1)
Quarter: 2018Q2

REPORT INFORMATION
  Report Type: Spontaneous
  Country: US (occurrence: US)
  Receive Date: 20180611
  Receipt Date: 20180611
  Transmission Date: 20180711
  Serious: No
  Sender: FDA-Public Use
  Company Number: US-BAYER-2018-105398

PATIENT
  Age: 68 Year
  Sex: Female
  Weight: 110.98 kg

DRUGS (2)
  1. CLARITIN-D 24 HOUR [Suspect]
     Active Substance: LORATADINE\PSEUDOEPHEDRINE SULFATE
     Indication: PAIN
     Dosage: 1 DF, QD
     Route: 048
     Dates: start: 20180527
  2. TAXOL [Suspect]
     Active Substance: PACLITAXEL

REACTIONS (2)
  - Therapeutic response unexpected [None]
  - Off label use [None]
